FAERS Safety Report 13046067 (Version 2)
Quarter: 2017Q1

REPORT INFORMATION
  Report Type: Spontaneous
  Country: IT (occurrence: IT)
  Receive Date: 20161220
  Receipt Date: 20170118
  Transmission Date: 20170428
  Serious: Yes (Other)
  Sender: FDA-Public Use
  Company Number: IT-JNJFOC-20161215631

PATIENT
  Age: 57 Year
  Sex: Female

DRUGS (2)
  1. ZESTORETIC [Concomitant]
     Active Substance: HYDROCHLOROTHIAZIDE\LISINOPRIL
     Route: 065
  2. SIMPONI [Suspect]
     Active Substance: GOLIMUMAB
     Indication: PSORIATIC ARTHROPATHY
     Route: 058
     Dates: start: 20160512

REACTIONS (4)
  - Off label use [Unknown]
  - Dry mouth [Unknown]
  - Xerophthalmia [Unknown]
  - Product use issue [Unknown]

NARRATIVE: CASE EVENT DATE: 20160512
